FAERS Safety Report 17841379 (Version 5)
Quarter: 2022Q3

REPORT INFORMATION
  Report Type: Spontaneous
  Country: US (occurrence: US)
  Receive Date: 20200529
  Receipt Date: 20220825
  Transmission Date: 20221027
  Serious: Yes (Other)
  Sender: FDA-Public Use
  Company Number: US-GILEAD-2020-0469343

PATIENT
  Age: 30 Year
  Sex: Female
  Weight: 68.027 kg

DRUGS (22)
  1. TRUVADA [Suspect]
     Active Substance: EMTRICITABINE\TENOFOVIR DISOPROXIL FUMARATE
     Indication: HIV infection
     Dosage: UNK
     Route: 048
     Dates: start: 2013, end: 201503
  2. AURYXIA [Concomitant]
     Active Substance: TETRAFERRIC TRICITRATE DECAHYDRATE
  3. AMOXICILLIN [Concomitant]
     Active Substance: AMOXICILLIN
  4. BACTRIM [Concomitant]
     Active Substance: SULFAMETHOXAZOLE\TRIMETHOPRIM
  5. HEPARIN [Concomitant]
     Active Substance: HEPARIN SODIUM
  6. LASIX [Concomitant]
     Active Substance: FUROSEMIDE
  7. LEVOFLOXACIN [Concomitant]
     Active Substance: LEVOFLOXACIN
  8. PREDNISOLONE [Concomitant]
     Active Substance: PREDNISOLONE
  9. COMBIVIR [Concomitant]
     Active Substance: LAMIVUDINE\ZIDOVUDINE
  10. EPIVIR [Concomitant]
     Active Substance: LAMIVUDINE
  11. KALETRA [Concomitant]
     Active Substance: LOPINAVIR\RITONAVIR
  12. PREZCOBIX [Concomitant]
     Active Substance: COBICISTAT\DARUNAVIR ETHANOLATE
  13. ACETAMINOPHEN [Concomitant]
     Active Substance: ACETAMINOPHEN
  14. FAMOTIDINE [Concomitant]
     Active Substance: FAMOTIDINE
  15. RETROVIR [Concomitant]
     Active Substance: ZIDOVUDINE
  16. CRYSELLE [Concomitant]
     Active Substance: ETHINYL ESTRADIOL\NORGESTREL
  17. LISINOPRIL [Concomitant]
     Active Substance: LISINOPRIL
  18. SULFAMETHOXAZOLE [Concomitant]
     Active Substance: SULFAMETHOXAZOLE
  19. METFORMIN [Concomitant]
     Active Substance: METFORMIN HYDROCHLORIDE
  20. PROMETHAZINE [Concomitant]
     Active Substance: PROMETHAZINE HYDROCHLORIDE
  21. NIFEDIPINE [Concomitant]
     Active Substance: NIFEDIPINE
  22. GLIMEPIRIDE [Concomitant]
     Active Substance: GLIMEPIRIDE

REACTIONS (4)
  - Chronic kidney disease [Unknown]
  - End stage renal disease [Not Recovered/Not Resolved]
  - Pain [Not Recovered/Not Resolved]
  - Emotional distress [Not Recovered/Not Resolved]

NARRATIVE: CASE EVENT DATE: 20180101
